FAERS Safety Report 24125054 (Version 1)
Quarter: 2024Q3

REPORT INFORMATION
  Report Type: Spontaneous
  Country: CN (occurrence: CN)
  Receive Date: 20240723
  Receipt Date: 20240723
  Transmission Date: 20241016
  Serious: Yes (Other)
  Sender: TEVA
  Company Number: CN-TEVA-VS-3142404

PATIENT
  Age: 68 Year
  Sex: Male
  Weight: 87 kg

DRUGS (4)
  1. AUSTEDO [Suspect]
     Active Substance: DEUTETRABENAZINE
     Indication: Tardive dyskinesia
     Route: 048
     Dates: start: 20231114, end: 20231201
  2. Jingnuo [Concomitant]
     Indication: Lipids decreased
     Route: 048
     Dates: start: 20231114, end: 20240102
  3. Mosapride tablet [Concomitant]
     Indication: Gastrointestinal motility disorder
     Route: 048
     Dates: start: 20231114, end: 20240102
  4. Suqingning [Concomitant]
     Indication: Psychotic disorder
     Route: 048
     Dates: start: 20231114, end: 20231201

REACTIONS (1)
  - Hepatitis [Recovering/Resolving]

NARRATIVE: CASE EVENT DATE: 20231128
